FAERS Safety Report 5321503-1 (Version None)
Quarter: 2007Q2

REPORT INFORMATION
  Report Type: 
  Country: None (occurrence: None)
  Receive Date: 20070510
  Receipt Date: 20070501
  Transmission Date: 20071010
  Serious: Yes (Death)
  Sender: FDA-Public Use
  Company Number: JP-MERCK-0704USA00117

PATIENT

DRUGS (2)
  1. INDOCIN [Suspect]
     Route: 054
  2. POLYETHYLENE GLYCOL [Suspect]
     Route: 054

REACTIONS (1)
  - DRUG INTERACTION [None]
